FAERS Safety Report 5875501-X (Version None)
Quarter: 2008Q3

REPORT INFORMATION
  Report Type: 
  Country: None (occurrence: None)
  Receive Date: 20080905
  Receipt Date: 20080829
  Transmission Date: 20090109
  Serious: Yes (Other)
  Sender: FDA-Public Use
  Company Number: CHPA2008US14515

PATIENT
  Age: 90 Year
  Sex: Female

DRUGS (1)
  1. EX-LAX REG STR LAX PILLS SENNA (NCH) (SENNA GLYCOSIDES (CA SALTS OF PU [Suspect]
     Indication: CONSTIPATION
     Dosage: 30 MG, QD, ORAL
     Route: 048
     Dates: start: 20080824, end: 20080829

REACTIONS (1)
  - HAEMATOCHEZIA [None]
